FAERS Safety Report 7496314-1 (Version None)
Quarter: 2011Q2

REPORT INFORMATION
  Report Type: 
  Country: None (occurrence: None)
  Receive Date: 20110523
  Receipt Date: 20110513
  Transmission Date: 20111010
  Serious: Yes (Hospitalization, Other)
  Sender: FDA-Public Use
  Company Number: US-ASTRAZENECA-2011SE21954

PATIENT
  Age: 53 Year
  Sex: Male

DRUGS (5)
  1. ATACAND [Suspect]
     Indication: HYPERCHOLESTEROLAEMIA
     Route: 048
     Dates: start: 20090101, end: 20110301
  2. METOPROLOL TARTRATE [Concomitant]
  3. SEROQUEL [Suspect]
     Indication: BIPOLAR DISORDER
     Route: 048
     Dates: start: 20110201, end: 20110330
  4. CRESTOR [Suspect]
     Route: 048
     Dates: start: 20080101, end: 20110301
  5. ZESTRIL [Suspect]
     Indication: HYPERTENSION
     Route: 048
     Dates: end: 20090101

REACTIONS (23)
  - ASTHENIA [None]
  - DEPRESSION [None]
  - SWELLING FACE [None]
  - DISEASE RECURRENCE [None]
  - MYOCARDIAL INFARCTION [None]
  - AGGRESSION [None]
  - WITHDRAWAL SYNDROME [None]
  - LABORATORY TEST ABNORMAL [None]
  - BLOOD PRESSURE INCREASED [None]
  - PALPITATIONS [None]
  - DIZZINESS [None]
  - SUICIDAL IDEATION [None]
  - FALL [None]
  - DIARRHOEA [None]
  - WEIGHT DECREASED [None]
  - MOOD SWINGS [None]
  - INAPPROPRIATE SCHEDULE OF DRUG ADMINISTRATION [None]
  - ANXIETY [None]
  - LOSS OF CONSCIOUSNESS [None]
  - RIB FRACTURE [None]
  - CLAVICLE FRACTURE [None]
  - WRONG TECHNIQUE IN DRUG USAGE PROCESS [None]
  - DRUG DOSE OMISSION [None]
